FAERS Safety Report 12906217 (Version 8)
Quarter: 2017Q4

REPORT INFORMATION
  Report Type: Report from Study
  Country: DE (occurrence: DE)
  Receive Date: 20161103
  Receipt Date: 20171025
  Transmission Date: 20180320
  Serious: Yes (Death, Life-Threatening, Hospitalization)
  Sender: FDA-Public Use
  Company Number: PHHO2016DE014940

PATIENT
  Age: 47 Year
  Sex: Male
  Weight: 95.5 kg

DRUGS (6)
  1. LFG316 [Suspect]
     Active Substance: TESIDOLUMAB
     Indication: MICROANGIOPATHY
     Dosage: NO TREATMENT
     Route: 042
  2. CELLCEPT [Concomitant]
     Active Substance: MYCOPHENOLATE MOFETIL\MYCOPHENOLATE MOFETIL HYDROCHLORIDE
     Indication: PRODUCT USED FOR UNKNOWN INDICATION
     Dosage: UNK
     Route: 065
  3. TACROLIMUS. [Concomitant]
     Active Substance: TACROLIMUS
     Indication: PROPHYLAXIS
     Dosage: 2 MG, BID
     Route: 048
     Dates: start: 20161013
  4. LFG316 [Suspect]
     Active Substance: TESIDOLUMAB
     Dosage: 1900 MG
     Route: 042
     Dates: start: 20161026, end: 20161026
  5. PREDNISOLONE. [Concomitant]
     Active Substance: PREDNISOLONE
     Indication: PROPHYLAXIS
     Dosage: 50 MG, QD (30 AND 20 MG)
     Route: 048
     Dates: start: 20161013
  6. NEORAL [Suspect]
     Active Substance: CYCLOSPORINE
     Indication: STEM CELL TRANSPLANT
     Dosage: UNK
     Route: 048

REACTIONS (4)
  - Multiple organ dysfunction syndrome [Fatal]
  - Microangiopathy [Fatal]
  - Respiratory failure [Fatal]
  - Device related infection [Recovered/Resolved]

NARRATIVE: CASE EVENT DATE: 20161011
